FAERS Safety Report 14162045 (Version 1)
Quarter: 2017Q4

REPORT INFORMATION
  Report Type: Report from Study
  Country: US (occurrence: US)
  Receive Date: 20171106
  Receipt Date: 20171106
  Transmission Date: 20180321
  Serious: No
  Sender: FDA-Public Use
  Company Number: US-AMGEN-USASL2017088170

PATIENT
  Age: 84 Year
  Sex: Female

DRUGS (4)
  1. ARANESP [Suspect]
     Active Substance: DARBEPOETIN ALFA
     Indication: BREAST CANCER FEMALE
  2. ARANESP [Suspect]
     Active Substance: DARBEPOETIN ALFA
     Indication: ANAEMIA
  3. ARANESP [Suspect]
     Active Substance: DARBEPOETIN ALFA
     Indication: WHITE BLOOD CELL COUNT INCREASED
  4. ARANESP [Suspect]
     Active Substance: DARBEPOETIN ALFA
     Indication: CHRONIC MYELOID LEUKAEMIA
     Dosage: UNK
     Route: 065

REACTIONS (1)
  - Off label use [Unknown]
